FAERS Safety Report 14428713 (Version 1)
Quarter: 2018Q1

REPORT INFORMATION
  Report Type: Report from Study
  Country: US (occurrence: US)
  Receive Date: 20180123
  Receipt Date: 20180123
  Transmission Date: 20180509
  Serious: Yes (Other)
  Sender: FDA-Public Use
  Company Number: US-ACTELION-A-US2016-134316

PATIENT
  Age: 83 Year
  Sex: Female
  Weight: 58.96 kg

DRUGS (2)
  1. OPSUMIT [Suspect]
     Active Substance: MACITENTAN
     Indication: PULMONARY HYPERTENSION
     Dosage: 10 MG, QD
     Route: 048
     Dates: start: 20160316
  2. ELIQUIS [Concomitant]
     Active Substance: APIXABAN

REACTIONS (9)
  - Decreased appetite [Unknown]
  - Dizziness [Unknown]
  - Cardiac arrest [Unknown]
  - Heart rate increased [Unknown]
  - Hypotension [Unknown]
  - Therapy non-responder [Unknown]
  - Fatigue [Unknown]
  - Therapy cessation [Unknown]
  - Palpitations [Unknown]
